FAERS Safety Report 8550579-3 (Version None)
Quarter: 2012Q3

REPORT INFORMATION
  Report Type: 
  Country: None (occurrence: None)
  Receive Date: 20120730
  Receipt Date: 20120727
  Transmission Date: 20120928
  Serious: Yes (Life-Threatening)
  Sender: FDA-Public Use
  Company Number: PHHY2012IT064584

PATIENT
  Sex: Male

DRUGS (3)
  1. LEUCOVORIN CALCIUM [Concomitant]
     Indication: COLON CANCER
     Route: 042
     Dates: start: 20120308, end: 20120705
  2. OXALIPLATIN [Suspect]
     Indication: COLON CANCER
     Dosage: 85 MG PER SQ METRE, CYCLIC
     Route: 042
     Dates: start: 20120308, end: 20120705
  3. FLUOROURACIL [Concomitant]
     Indication: COLON CANCER
     Route: 042
     Dates: start: 20120308, end: 20120705

REACTIONS (5)
  - LOSS OF CONSCIOUSNESS [None]
  - TRISMUS [None]
  - DYSPNOEA [None]
  - MIOSIS [None]
  - HYPOTENSION [None]
